FAERS Safety Report 26142926 (Version 1)
Quarter: 2025Q4

REPORT INFORMATION
  Report Type: Spontaneous
  Country: TW (occurrence: TW)
  Receive Date: 20251211
  Receipt Date: 20251211
  Transmission Date: 20260117
  Serious: Yes (Life-Threatening, Hospitalization)
  Sender: MERCK SHARP & DOHME LLC
  Company Number: TW-009507513-2358620

PATIENT
  Sex: Male

DRUGS (1)
  1. PEMBROLIZUMAB [Suspect]
     Active Substance: PEMBROLIZUMAB
     Dosage: TWO DOSES
     Dates: start: 2025, end: 2025

REACTIONS (2)
  - Myelosuppression [Unknown]
  - Pneumonia [Unknown]

NARRATIVE: CASE EVENT DATE: 20251101
